FAERS Safety Report 6589788-1 (Version None)
Quarter: 2010Q1

REPORT INFORMATION
  Report Type: 
  Country: None (occurrence: None)
  Receive Date: 20100219
  Receipt Date: 20100208
  Transmission Date: 20100710
  Serious: Yes (Death)
  Sender: FDA-Public Use
  Company Number: DE-JNJFOC-20100205799

PATIENT
  Age: 82 Year
  Sex: Female

DRUGS (2)
  1. REOPRO [Suspect]
     Indication: ACUTE MYOCARDIAL INFARCTION
     Dosage: BOLUS @10:31
     Route: 016
  2. REOPRO [Suspect]
     Dosage: INFUSION FROM 10:33 - 24:00 (1 DAY, 13 HOURS)
     Route: 042

REACTIONS (2)
  - CARDIOGENIC SHOCK [None]
  - INCORRECT ROUTE OF DRUG ADMINISTRATION [None]
